FAERS Safety Report 8050430-4 (Version None)
Quarter: 2012Q1

REPORT INFORMATION
  Report Type: 
  Country: None (occurrence: None)
  Receive Date: 20120117
  Receipt Date: 20120104
  Transmission Date: 20120608
  Serious: Yes (Other)
  Sender: FDA-Public Use
  Company Number: US-ALLERGAN-1200105US

PATIENT
  Age: 65 Year
  Sex: Female

DRUGS (2)
  1. RESTASIS [Suspect]
     Indication: DRY EYE
     Dosage: 2 GTT, BID
     Route: 047
     Dates: start: 20110101
  2. SYSTANE [Concomitant]
     Indication: DRY EYE
     Dosage: UNK
     Route: 047

REACTIONS (7)
  - OCULAR NEOPLASM [None]
  - WRONG TECHNIQUE IN DRUG USAGE PROCESS [None]
  - DACRYOSTENOSIS ACQUIRED [None]
  - INAPPROPRIATE SCHEDULE OF DRUG ADMINISTRATION [None]
  - RETINAL DISORDER [None]
  - EYELID DISORDER [None]
  - INCORRECT STORAGE OF DRUG [None]
